FAERS Safety Report 4553334-4 (Version None)
Quarter: 2005Q1

REPORT INFORMATION
  Report Type: 
  Country: None (occurrence: None)
  Receive Date: 20050112
  Receipt Date: 20050104
  Transmission Date: 20050727
  Serious: Yes (Hospitalization)
  Sender: FDA-Public Use
  Company Number: 2004AP05129

PATIENT
  Age: 63 Year
  Sex: Male

DRUGS (1)
  1. MEROPEN [Suspect]
     Indication: SEPSIS
     Dosage: 0.5 G TID IVD
     Route: 042
     Dates: start: 20040712, end: 20040714

REACTIONS (4)
  - ALANINE AMINOTRANSFERASE INCREASED [None]
  - BLOOD ALKALINE PHOSPHATASE INCREASED [None]
  - BLOOD LACTATE DEHYDROGENASE INCREASED [None]
  - HEPATIC FUNCTION ABNORMAL [None]
